FAERS Safety Report 24837678 (Version 4)
Quarter: 2025Q2

REPORT INFORMATION
  Report Type: Spontaneous
  Country: PL (occurrence: PL)
  Receive Date: 20250113
  Receipt Date: 20250401
  Transmission Date: 20250717
  Serious: Yes (Hospitalization, Other)
  Sender: DR REDDYS
  Company Number: None

PATIENT
  Age: 36 Year
  Sex: Female

DRUGS (31)
  1. PREGABALIN [Suspect]
     Active Substance: PREGABALIN
     Indication: Product used for unknown indication
     Route: 065
  2. ACETAMINOPHEN [Suspect]
     Active Substance: ACETAMINOPHEN
     Indication: Toothache
     Route: 065
  3. ACETAMINOPHEN [Suspect]
     Active Substance: ACETAMINOPHEN
     Indication: Gingival pain
  4. ETORICOXIB [Suspect]
     Active Substance: ETORICOXIB
     Indication: Pain
     Route: 065
  5. DICLOFENAC [Suspect]
     Active Substance: DICLOFENAC
     Indication: Toothache
     Route: 048
  6. DICLOFENAC [Suspect]
     Active Substance: DICLOFENAC
     Route: 061
  7. CLINDAMYCIN [Suspect]
     Active Substance: CLINDAMYCIN
     Indication: Toothache
     Route: 065
  8. AMOXICILLIN [Suspect]
     Active Substance: AMOXICILLIN
     Indication: Toothache
     Route: 065
  9. BENZYDAMINE [Suspect]
     Active Substance: BENZYDAMINE
     Indication: Toothache
     Route: 061
  10. BUPRENORPHINE [Suspect]
     Active Substance: BUPRENORPHINE
     Indication: Toothache
  11. BUPRENORPHINE [Suspect]
     Active Substance: BUPRENORPHINE
  12. CHLORHEXIDINE [Suspect]
     Active Substance: CHLORHEXIDINE
     Indication: Toothache
     Route: 061
  13. ACETAMINOPHEN\CODEINE [Suspect]
     Active Substance: ACETAMINOPHEN\CODEINE
     Indication: Toothache
     Route: 065
  14. DULOXETINE [Suspect]
     Active Substance: DULOXETINE
     Indication: Pain
     Route: 065
  15. DIAZEPAM [Suspect]
     Active Substance: DIAZEPAM
     Indication: Toothache
     Route: 065
  16. FLURBIPROFEN [Suspect]
     Active Substance: FLURBIPROFEN
     Indication: Toothache
     Route: 061
  17. IBUPROFEN [Suspect]
     Active Substance: IBUPROFEN
     Indication: Toothache
     Route: 065
  18. LIDOCAINE HYDROCHLORIDE [Suspect]
     Active Substance: LIDOCAINE HYDROCHLORIDE
     Indication: Toothache
     Route: 065
  19. METAMIZOLE [Suspect]
     Active Substance: METAMIZOLE
     Indication: Gingival pain
     Route: 065
  20. MORPHINE [Suspect]
     Active Substance: MORPHINE
     Indication: Toothache
     Route: 065
  21. TRAZODONE [Suspect]
     Active Substance: TRAZODONE HYDROCHLORIDE
     Indication: Pain
     Route: 065
  22. ACETAMINOPHEN [Suspect]
     Active Substance: ACETAMINOPHEN
     Indication: Toothache
     Route: 065
  23. DOXYLAMINE [Suspect]
     Active Substance: DOXYLAMINE
     Indication: Sleep disorder
     Dosage: 25 MG AT NIGHT
     Route: 065
  24. DOXYLAMINE [Suspect]
     Active Substance: DOXYLAMINE
     Indication: Insomnia
  25. DOXYLAMINE [Suspect]
     Active Substance: DOXYLAMINE
     Indication: Depression
  26. ESCITALOPRAM [Suspect]
     Active Substance: ESCITALOPRAM OXALATE
     Indication: Depression
     Dosage: 10 MG AT NIGHT
     Route: 065
  27. ESCITALOPRAM [Suspect]
     Active Substance: ESCITALOPRAM OXALATE
     Indication: Insomnia
  28. IPIDACRINE [Concomitant]
     Active Substance: IPIDACRINE
     Indication: Product used for unknown indication
  29. KETOPROFEN [Concomitant]
     Active Substance: KETOPROFEN
     Indication: Toothache
     Route: 065
  30. OXYCODONE [Concomitant]
     Active Substance: OXYCODONE
     Indication: Toothache
     Route: 065
  31. OXYCODONE [Concomitant]
     Active Substance: OXYCODONE
     Indication: Analgesic therapy

REACTIONS (7)
  - Drug interaction [Recovered/Resolved]
  - Hyperaesthesia [Recovered/Resolved]
  - Dry mouth [Unknown]
  - Toothache [Recovering/Resolving]
  - Somnolence [Unknown]
  - Central pain syndrome [Recovered/Resolved]
  - Gingival pain [Recovering/Resolving]
